FAERS Safety Report 6702641 (Version 14)
Quarter: 2013Q1

REPORT INFORMATION
  Report Type: Report from Study
  Country: JP (occurrence: JP)
  Receive Date: 20080717
  Receipt Date: 20130311
  Transmission Date: 20140127
  Serious: Yes (Hospitalization, Other)
  Sender: FDA-Public Use
  Company Number: PHHO2008JP08670

PATIENT
  Age: 41 None
  Sex: Female
  Weight: 48 kg

DRUGS (22)
  1. ICL670A [Suspect]
     Indication: IRON OVERLOAD
     Dosage: 1000 MG, QD
     Route: 048
     Dates: start: 20080416, end: 20080501
  2. ICL670A [Suspect]
     Dosage: 1000 MG, QD
     Route: 048
     Dates: start: 20080508, end: 20080512
  3. ICL670A [Suspect]
     Dosage: 1000 MG, QD
     Route: 048
     Dates: start: 20080611, end: 20090830
  4. ICL670A [Suspect]
     Dosage: 20 MG/KG, QD
     Route: 048
     Dates: start: 20090909
  5. DEPROMEL [Concomitant]
     Indication: NEUROSIS
     Dosage: 75 MG, UNK
     Route: 048
  6. SEDIEL [Concomitant]
     Indication: NEUROSIS
     Dosage: 30 MG, UNK
     Route: 048
  7. LENDORMIN [Concomitant]
     Indication: NEUROSIS
     Dosage: 0.25 MG, UNK
     Route: 048
  8. ALFAROL [Concomitant]
     Indication: OSTEOPOROSIS
     Dosage: 25 UG, UNK
     Route: 048
  9. FOLIAMIN [Concomitant]
     Indication: PORPHYRIA NON-ACUTE
     Dosage: 10 MG, UNK
     Route: 048
  10. VITAMEDIN CAPSULE [Concomitant]
     Indication: SKIN ULCER
     Dosage: 50 MG, UNK
     Route: 048
  11. TAKEPRON [Concomitant]
     Indication: PROPHYLAXIS
     Dosage: 15 MG, UNK
     Route: 048
  12. HICEE [Concomitant]
     Indication: PORPHYRIA NON-ACUTE
     Dosage: 1.5 G, UNK
     Route: 048
     Dates: start: 20080703
  13. MAGLAX [Concomitant]
     Indication: CONSTIPATION PROPHYLAXIS
     Dosage: 500 MG, UNK
     Route: 048
     Dates: start: 20080703
  14. SOLETON [Concomitant]
     Indication: SKIN ULCER
     Dosage: 240 MG, UNK
     Route: 048
     Dates: start: 200805
  15. RIVOTRIL [Concomitant]
     Indication: SKIN ULCER
     Dosage: 0.5 MG, UNK
     Route: 048
  16. MYSLEE [Concomitant]
     Indication: NEUROSIS
     Dosage: 5 MG, UNK
     Route: 048
  17. DEPAS [Concomitant]
     Indication: NEUROSIS
     Dosage: 0.5 MG, UNK
     Route: 048
  18. LIVOSTIN [Concomitant]
     Dosage: UNK
     Dates: start: 20090806
  19. PETROLATUM [Concomitant]
  20. PROMAC [Concomitant]
     Indication: SKIN ULCER
     Dosage: 150 MG, UNK
     Route: 048
  21. AZUNOL [Concomitant]
     Indication: SKIN ULCER
     Dosage: UNK
     Route: 061
  22. ADONA [Concomitant]
     Dosage: 90 MG, UNK
     Route: 048
     Dates: start: 20090521

REACTIONS (29)
  - Cataract [Recovered/Resolved]
  - Malaise [Recovered/Resolved]
  - Retinal haemorrhage [Recovered/Resolved]
  - Condition aggravated [Recovered/Resolved]
  - Fibrin degradation products increased [Not Recovered/Not Resolved]
  - Skin ulcer [Recovered/Resolved]
  - Neurosis [Recovered/Resolved]
  - Pertussis [Recovered/Resolved]
  - Nasopharyngitis [Recovered/Resolved]
  - Cellulitis [Recovered/Resolved]
  - Photosensitivity reaction [Unknown]
  - Skin erosion [Unknown]
  - Feeling hot [Unknown]
  - Erythema [Unknown]
  - Tenderness [Unknown]
  - Thermal burn [Unknown]
  - Visual field defect [Recovered/Resolved]
  - Epidermolysis bullosa [Unknown]
  - Pyrexia [Recovered/Resolved]
  - Pain [Recovered/Resolved]
  - Cough [Recovered/Resolved]
  - Pyoderma gangrenosum [Unknown]
  - Pain in extremity [Unknown]
  - Vasculitis [Unknown]
  - Impetigo [Unknown]
  - Anxiety [Unknown]
  - Blister [Unknown]
  - Fibrin D dimer increased [Not Recovered/Not Resolved]
  - Myalgia [Recovered/Resolved]
